FAERS Safety Report 8602089-2 (Version None)
Quarter: 2012Q3

REPORT INFORMATION
  Report Type: 
  Country: None (occurrence: None)
  Receive Date: 20120817
  Receipt Date: 20120813
  Transmission Date: 20120928
  Serious: No
  Sender: FDA-Public Use
  Company Number: US-PFIZER INC-2012182970

PATIENT
  Age: 65 Year
  Sex: Male

DRUGS (4)
  1. COREG [Concomitant]
     Indication: CORONARY ARTERY DISEASE
     Dosage: 12.5 MG, UNK
     Dates: start: 20070801, end: 20120710
  2. VIAGRA [Suspect]
     Indication: ERECTILE DYSFUNCTION
     Dosage: 100 MG, AS NEEDED
     Route: 048
     Dates: start: 20120710, end: 20120723
  3. SIMVASTATIN [Concomitant]
     Indication: BLOOD CHOLESTEROL
     Dosage: 40 MG, UNK
     Dates: start: 20090801
  4. LISINOPRIL [Concomitant]
     Indication: CORONARY ARTERY DISEASE
     Dosage: 20 MG, UNK
     Dates: start: 20120710

REACTIONS (3)
  - BACK PAIN [None]
  - OVERDOSE [None]
  - DRUG ADMINISTRATION ERROR [None]
